FAERS Safety Report 4285600-4 (Version None)
Quarter: 2004Q1

REPORT INFORMATION
  Report Type: 
  Country: None (occurrence: None)
  Receive Date: 20040203
  Receipt Date: 20040123
  Transmission Date: 20041129
  Serious: Yes (Hospitalization)
  Sender: FDA-Public Use
  Company Number: 04P-163-0248025-00

PATIENT
  Age: 49 Year
  Sex: Female

DRUGS (10)
  1. HUMIRA [Suspect]
     Indication: PSORIATIC ARTHROPATHY
     Dosage: 40 MG, 1 IN 2 WK, SUBCUTANEOUS
     Route: 058
     Dates: start: 20040108, end: 20040123
  2. AZATHIOPRINE [Concomitant]
  3. ETANERCEPT [Concomitant]
  4. LISINOPRIL [Concomitant]
  5. PAROXETINE HCL [Concomitant]
  6. CALCITRATE + 600 [Concomitant]
  7. FLAX SEED [Concomitant]
  8. IBUPROFEN [Concomitant]
  9. PARACETAMOL [Concomitant]
  10. PROPACET 100 [Concomitant]

REACTIONS (7)
  - DIARRHOEA [None]
  - HYPOAESTHESIA [None]
  - INJECTION SITE PAIN [None]
  - MYALGIA [None]
  - NAUSEA [None]
  - PARAESTHESIA [None]
  - PSORIATIC ARTHROPATHY [None]
